FAERS Safety Report 19443923 (Version 1)
Quarter: 2021Q2

REPORT INFORMATION
  Report Type: Spontaneous
  Country: AE (occurrence: AE)
  Receive Date: 20210621
  Receipt Date: 20210621
  Transmission Date: 20210717
  Serious: Yes (Other)
  Sender: FDA-Public Use
  Company Number: AE-ELI_LILLY_AND_COMPANY-AE202106006179

PATIENT
  Age: 36 Year
  Sex: Female

DRUGS (3)
  1. IXEKIZUMAB 80MG [Suspect]
     Active Substance: IXEKIZUMAB
     Dosage: 80 MG, OTHER (EVERY FOUR WEEKS)
     Route: 065
  2. IXEKIZUMAB 80MG [Suspect]
     Active Substance: IXEKIZUMAB
     Indication: PSORIATIC ARTHROPATHY
     Dosage: 160 MG, UNKNOWN
     Route: 065
     Dates: start: 202010
  3. IXEKIZUMAB 80MG [Suspect]
     Active Substance: IXEKIZUMAB
     Dosage: 80 MG, OTHER (EVERY TWO WEEKS)
     Route: 065

REACTIONS (1)
  - Osteoarthritis [Unknown]
